FAERS Safety Report 4802107-3 (Version None)
Quarter: 2005Q4

REPORT INFORMATION
  Report Type: 
  Country: None (occurrence: None)
  Receive Date: 20051012
  Receipt Date: 20050929
  Transmission Date: 20060501
  Serious: Yes (Hospitalization)
  Sender: FDA-Public Use
  Company Number: 2005063353

PATIENT
  Sex: Female

DRUGS (3)
  1. PROSTIN VR PEDIATRIC [Suspect]
     Indication: ILL-DEFINED DISORDER
     Dosage: (0.05 MGC/KG, CONTINUOUSLY FOR 2 DAYS), INTRAVENOUS
     Route: 042
     Dates: start: 20050425
  2. TOTAL PARENTERAL NUTRITION (TOTAL PARENTERAL NUTRITION) [Concomitant]
  3. DOPAMINE HCL [Concomitant]

REACTIONS (3)
  - PHARMACEUTICAL PRODUCT COMPLAINT [None]
  - THERAPEUTIC RESPONSE DELAYED [None]
  - WRONG TECHNIQUE IN DRUG USAGE PROCESS [None]
